FAERS Safety Report 12191433 (Version 2)
Quarter: 2016Q2

REPORT INFORMATION
  Report Type: Report from Study
  Country: US (occurrence: US)
  Receive Date: 20160318
  Receipt Date: 20160422
  Transmission Date: 20160815
  Serious: Yes (Hospitalization)
  Sender: FDA-Public Use
  Company Number: US-ABBVIE-16K-163-1580987-00

PATIENT
  Age: 59 Year
  Sex: Male
  Weight: 99.88 kg

DRUGS (2)
  1. HUMIRA [Suspect]
     Active Substance: ADALIMUMAB
     Indication: COLITIS ULCERATIVE
     Route: 058
     Dates: start: 201604
  2. HUMIRA [Suspect]
     Active Substance: ADALIMUMAB
     Indication: CROHN^S DISEASE
     Route: 058
     Dates: start: 201501, end: 201601

REACTIONS (8)
  - Fall [Recovered/Resolved]
  - Skull fracture [Unknown]
  - Crohn^s disease [Not Recovered/Not Resolved]
  - Limb injury [Recovered/Resolved]
  - Colitis ulcerative [Not Recovered/Not Resolved]
  - Laceration [Recovered/Resolved]
  - Haemorrhage intracranial [Unknown]
  - Drug prescribing error [Recovered/Resolved]

NARRATIVE: CASE EVENT DATE: 201512
